FAERS Safety Report 5750890-5 (Version None)
Quarter: 2008Q2

REPORT INFORMATION
  Report Type: 
  Country: None (occurrence: None)
  Receive Date: 20080528
  Receipt Date: 20080522
  Transmission Date: 20081010
  Serious: Yes (Hospitalization)
  Sender: FDA-Public Use
  Company Number: JP-ASTRAZENECA-2008AP03895

PATIENT
  Age: 67 Year
  Sex: Male

DRUGS (2)
  1. MARCAINE [Suspect]
     Route: 008
     Dates: start: 20080503, end: 20080507
  2. MARCAINE [Suspect]
     Route: 008
     Dates: start: 20080502, end: 20080507

REACTIONS (1)
  - HEPATIC FUNCTION ABNORMAL [None]
